FAERS Safety Report 8616006-2 (Version None)
Quarter: 2012Q3

REPORT INFORMATION
  Report Type: 
  Country: None (occurrence: None)
  Receive Date: 20120823
  Receipt Date: 20120814
  Transmission Date: 20120928
  Serious: Yes (Hospitalization, Other)
  Sender: FDA-Public Use
  Company Number: US-ROCHE-734015

PATIENT
  Sex: Male
  Weight: 72.6 kg

DRUGS (1)
  1. ACCUTANE [Suspect]
     Indication: ACNE CYSTIC
     Route: 065
     Dates: start: 19820601, end: 19861231

REACTIONS (11)
  - INFLAMMATORY BOWEL DISEASE [None]
  - CROHN'S DISEASE [None]
  - COLITIS ULCERATIVE [None]
  - IRRITABLE BOWEL SYNDROME [None]
  - ANAL FISTULA [None]
  - SMALL INTESTINAL OBSTRUCTION [None]
  - GASTROINTESTINAL INJURY [None]
  - PERIRECTAL ABSCESS [None]
  - DEPRESSION [None]
  - PERIUMBILICAL ABSCESS [None]
  - SUICIDAL IDEATION [None]
